FAERS Safety Report 9597078 (Version 1)
Quarter: 2013Q4

REPORT INFORMATION
  Report Type: Spontaneous
  Country: GB (occurrence: GB)
  Receive Date: 20131004
  Receipt Date: 20131004
  Transmission Date: 20140711
  Serious: Yes (Other)
  Sender: FDA-Public Use
  Company Number: GB-WATSON-2013-17418

PATIENT
  Age: 87 Year
  Sex: Male

DRUGS (6)
  1. ISONIAZID (WATSON LABORATORIES) [Suspect]
     Indication: TUBERCULOSIS BLADDER
     Dosage: UNK
     Route: 065
  2. RIFAMPICIN [Suspect]
     Indication: TUBERCULOSIS BLADDER
     Dosage: UNK
     Route: 065
  3. ETAMBUTOL /00022301/ [Interacting]
     Indication: TUBERCULOSIS BLADDER
     Dosage: UNK
     Route: 065
  4. PYRAZINAMIDE [Suspect]
     Indication: TUBERCULOSIS BLADDER
     Dosage: UNK
     Route: 065
  5. PHENYTOIN [Concomitant]
     Indication: EPILEPSY
     Dosage: 200 MG, DAILY
     Route: 065
  6. PHENYTOIN [Concomitant]
     Dosage: 100 MG, DAILY
     Route: 065

REACTIONS (2)
  - Blood albumin decreased [Recovering/Resolving]
  - Decreased appetite [Recovering/Resolving]
